FAERS Safety Report 9602405 (Version 2)
Quarter: 2013Q4

REPORT INFORMATION
  Report Type: Report from Study
  Country: US (occurrence: US)
  Receive Date: 20131007
  Receipt Date: 20131007
  Transmission Date: 20140711
  Serious: Yes (Hospitalization)
  Sender: FDA-Public Use
  Company Number: US-SANOFI-AVENTIS-2013SA067441

PATIENT
  Age: 46 Year
  Sex: Female

DRUGS (1)
  1. AUBAGIO [Suspect]
     Indication: MULTIPLE SCLEROSIS
     Dosage: PRODUCT START DATE-~5 MONTHS AGO
     Route: 048

REACTIONS (7)
  - Infection [Unknown]
  - Confusional state [Recovered/Resolved]
  - Delirium [Recovered/Resolved]
  - Restless legs syndrome [Unknown]
  - Blood potassium abnormal [Unknown]
  - Anxiety [Unknown]
  - Abdominal pain upper [Unknown]
